FAERS Safety Report 10602097 (Version 1)
Quarter: 2014Q4

REPORT INFORMATION
  Report Type: Spontaneous
  Country: DK (occurrence: DE)
  Receive Date: 20141124
  Receipt Date: 20141124
  Transmission Date: 20150529
  Serious: Yes (Other)
  Sender: FDA-Public Use
  Company Number: DE-FRI-1000072580

PATIENT
  Age: 0 Year
  Sex: Female
  Weight: 2.8 kg

DRUGS (13)
  1. CITALOPRAM [Suspect]
     Active Substance: CITALOPRAM HYDROBROMIDE
     Dosage: 30 MG
     Route: 064
     Dates: start: 20131118, end: 20140815
  2. LAMOTRIGIN [Suspect]
     Active Substance: LAMOTRIGINE
     Dosage: 150 MG
     Route: 064
     Dates: start: 20131111
  3. FRAXIPARIN [Concomitant]
     Active Substance: NADROPARIN CALCIUM
     Dosage: 2850 IU
     Route: 064
     Dates: start: 20131201, end: 20140812
  4. CALCIUM [Concomitant]
     Active Substance: CALCIUM
     Dosage: 1000 MG
     Route: 064
     Dates: start: 20131118, end: 20140815
  5. ENGERIX B [Concomitant]
     Route: 064
     Dates: start: 20131127, end: 20131127
  6. SUMATRIPTAN. [Concomitant]
     Active Substance: SUMATRIPTAN
     Route: 064
  7. PROGESTERON [Concomitant]
     Dosage: 200 MG
     Route: 064
     Dates: start: 20131118, end: 20140815
  8. LAMOTRIGIN [Suspect]
     Active Substance: LAMOTRIGINE
     Dosage: 175 MG
     Route: 064
     Dates: end: 20140815
  9. LEVOTHYROXINE SODIUM. [Concomitant]
     Active Substance: LEVOTHYROXINE SODIUM
     Dosage: 250 MICROGRAMS
     Route: 064
     Dates: start: 20131111, end: 20140815
  10. FOLSAN ABBOTT [Concomitant]
     Dosage: 5 MG
     Route: 064
     Dates: start: 20131118, end: 20140815
  11. FSME-IMMUN [Concomitant]
     Dosage: THIRD VACCINE SHOT
     Route: 064
     Dates: start: 20140414, end: 20140414
  12. ACETYLSALICYLIC ACID [Concomitant]
     Active Substance: ASPIRIN
     Dosage: 100 MG
     Route: 064
     Dates: start: 20131111, end: 20140815
  13. DEKRISTOL [Concomitant]
     Active Substance: CHOLECALCIFEROL
     Dosage: 20000 IU WEEKLY
     Route: 064
     Dates: start: 20131118, end: 20140815

REACTIONS (4)
  - Respiratory disorder neonatal [Recovered/Resolved]
  - Meconium in amniotic fluid [Recovered/Resolved]
  - Foetal exposure during pregnancy [Recovered/Resolved]
  - Agitation [Recovered/Resolved]

NARRATIVE: CASE EVENT DATE: 20131118
